FAERS Safety Report 14660335 (Version 1)
Quarter: 2018Q1

REPORT INFORMATION
  Report Type: Spontaneous
  Country: US (occurrence: US)
  Receive Date: 20180320
  Receipt Date: 20180320
  Transmission Date: 20180509
  Serious: Yes (Hospitalization, Other)
  Sender: FDA-Public Use
  Company Number: US-PFIZER INC-2018113637

PATIENT
  Age: 57 Year
  Sex: Male
  Weight: 77.98 kg

DRUGS (14)
  1. PREDNISONE. [Concomitant]
     Active Substance: PREDNISONE
     Dosage: 5 MG, DAILY
  2. LANTUS [Concomitant]
     Active Substance: INSULIN GLARGINE
     Indication: TYPE 1 DIABETES MELLITUS
     Dosage: 10 IU, DAILY (10 UNITS PER DAY)
  3. IRON [Concomitant]
     Active Substance: IRON
     Dosage: 62 MG, DAILY (OVER THE COUNTER)
  4. BRIMONIDINE [Concomitant]
     Active Substance: BRIMONIDINE TARTRATE
     Dosage: 3 GTT, DAILY (3 DROPS PER DAY IN THE LEFT EYE)
     Route: 047
  5. BABY ASPIRIN [Concomitant]
     Active Substance: ASPIRIN
     Dosage: UNK UNK, 2X/DAY (TWICE)
  6. LATANOPROST. [Concomitant]
     Active Substance: LATANOPROST
     Dosage: 1 GTT, 1X/DAY, (ONE DROP IN THE LEFT EYE AT BEDTIME)
     Route: 047
  7. CALCITRIOL. [Concomitant]
     Active Substance: CALCITRIOL
     Dosage: UNK
  8. ASPIRIN. [Concomitant]
     Active Substance: ASPIRIN
     Dosage: 82 MG, 1X/DAY (ONCE A DAY)
  9. NOVOLIN R [Concomitant]
     Active Substance: INSULIN HUMAN
     Indication: DIABETES MELLITUS
     Dosage: 5 IU, UNK (5 UNITS EACH MEAL)
  10. BUMEX [Concomitant]
     Active Substance: BUMETANIDE
     Indication: POLYURIA
     Dosage: 2.5 MG, 1X/DAY (ONCE DAILY)
  11. RAPAMUNE [Suspect]
     Active Substance: SIROLIMUS
     Indication: PROPHYLAXIS AGAINST TRANSPLANT REJECTION
     Dosage: 2 MG, 1X/DAY
  12. TIMOLOL. [Concomitant]
     Active Substance: TIMOLOL
     Dosage: UNK , 2X/DAY (TWICE A DAY IN THE LEFT EYE)
     Route: 047
  13. PAXIL [Concomitant]
     Active Substance: PAROXETINE HYDROCHLORIDE
     Dosage: 20 MG, DAILY
  14. METOLAZONE. [Concomitant]
     Active Substance: METOLAZONE
     Indication: POLYURIA
     Dosage: 10 MG, 1X/DAY (ONCE DAILY)

REACTIONS (6)
  - Impaired healing [Recovering/Resolving]
  - Fluid retention [Recovering/Resolving]
  - Road traffic accident [Unknown]
  - Renal impairment [Recovering/Resolving]
  - Deep vein thrombosis [Unknown]
  - Product use in unapproved indication [Unknown]

NARRATIVE: CASE EVENT DATE: 2012
